FAERS Safety Report 7652093 (Version 3)
Quarter: 2014Q1

REPORT INFORMATION
  Report Type: Spontaneous
  Country: US (occurrence: US)
  Receive Date: 20101101
  Receipt Date: 20140221
  Transmission Date: 20141002
  Serious: Yes (Hospitalization, Other)
  Sender: FDA-Public Use
  Company Number: US-BAYER-201038548NA

PATIENT
  Age: 22 Year
  Sex: Female
  Weight: 53.52 kg

DRUGS (8)
  1. YASMIN [Suspect]
     Dosage: UNK UNK, QD
     Route: 048
     Dates: start: 2007, end: 2008
  2. OCELLA [Suspect]
     Dosage: UNK
     Dates: start: 2007, end: 2008
  3. YAZ [Suspect]
  4. DICYCLOMINE [Concomitant]
  5. PROMETHAZINE [Concomitant]
     Dosage: 25 MG, 4-6 HOURS - PRN
     Route: 048
     Dates: start: 20080930
  6. OXYCODONE [Concomitant]
     Indication: PAIN
     Dosage: 5 MG, 4-6 HOURS - PRN
     Route: 048
     Dates: start: 20080930
  7. OXYCODONE [Concomitant]
     Indication: PAIN
     Dosage: 325 MG, 4-6 HOURS -PRN
  8. BENTYL [Concomitant]
     Indication: PAIN
     Dosage: UNK
     Dates: start: 20081010

REACTIONS (3)
  - Cholelithiasis [Unknown]
  - Pain [Unknown]
  - Cholecystitis chronic [None]
